FAERS Safety Report 12911605 (Version 1)
Quarter: 2016Q4

REPORT INFORMATION
  Report Type: Not Available
  Country: FR (occurrence: FR)
  Receive Date: 20161104
  Receipt Date: 20161104
  Transmission Date: 20170207
  Serious: Yes (Hospitalization)
  Sender: FDA-Public Use
  Company Number: FR-PURDUE-GBR-2016-0041365

PATIENT
  Age: 48 Year
  Sex: Male

DRUGS (12)
  1. ACETYLCYSTEIN [Concomitant]
     Active Substance: ACETYLCYSTEINE
  2. METHYLPREDNISOLONE. [Concomitant]
     Active Substance: METHYLPREDNISOLONE
  3. CLONAZEPAM. [Concomitant]
     Active Substance: CLONAZEPAM
  4. AMITRIPTYLINE [Concomitant]
     Active Substance: AMITRIPTYLINE
  5. DIAZEPAM. [Concomitant]
     Active Substance: DIAZEPAM
  6. PANTOPRAZOLE [Concomitant]
     Active Substance: PANTOPRAZOLE SODIUM
  7. OXYGEN. [Concomitant]
     Active Substance: OXYGEN
     Indication: SLEEP APNOEA SYNDROME
     Dosage: UNK, PRN
  8. PARACETAMOL [Concomitant]
     Active Substance: ACETAMINOPHEN
  9. OXYCONTIN [Suspect]
     Active Substance: OXYCODONE HYDROCHLORIDE
     Indication: PRODUCT USED FOR UNKNOWN INDICATION
     Dosage: UNK, STRENGTH 5MG
     Route: 048
     Dates: start: 201511
  10. MIANSERINE [Concomitant]
     Active Substance: MIANSERIN HYDROCHLORIDE
  11. COLOPEG                            /06341701/ [Concomitant]
  12. SPASFON                            /00934601/ [Concomitant]
     Active Substance: PHLOROGLUCINOL

REACTIONS (4)
  - Faecaloma [Recovered/Resolved]
  - Pneumonia aspiration [Recovered/Resolved]
  - Constipation [Recovered/Resolved]
  - Vomiting [Recovered/Resolved]

NARRATIVE: CASE EVENT DATE: 20160129
